FAERS Safety Report 6989477-5 (Version None)
Quarter: 2010Q3

REPORT INFORMATION
  Report Type: 
  Country: None (occurrence: None)
  Receive Date: 20100916
  Receipt Date: 20091228
  Transmission Date: 20110219
  Serious: Yes (Other)
  Sender: FDA-Public Use
  Company Number: US-PFIZER INC-2009306781

PATIENT
  Sex: Female
  Weight: 106.12 kg

DRUGS (4)
  1. LYRICA [Suspect]
     Indication: FIBROMYALGIA
     Dosage: 200 MG, 2X/DAY
     Route: 048
     Dates: start: 20080701
  2. LYRICA [Suspect]
     Indication: PAIN
  3. XANAX [Concomitant]
     Indication: SLEEP DISORDER
     Dosage: UNK
  4. PROTONIX [Concomitant]
     Dosage: UNK

REACTIONS (4)
  - ABDOMINAL DISTENSION [None]
  - BLOOD IRON DECREASED [None]
  - ROAD TRAFFIC ACCIDENT [None]
  - WEIGHT INCREASED [None]
